FAERS Safety Report 12492192 (Version 1)
Quarter: 2016Q2

REPORT INFORMATION
  Report Type: Spontaneous
  Country: US (occurrence: US)
  Receive Date: 20160623
  Receipt Date: 20160623
  Transmission Date: 20160815
  Serious: Yes (Hospitalization)
  Sender: FDA-Public Use
  Company Number: US-AMGEN-USASP2016080135

PATIENT
  Sex: Female

DRUGS (1)
  1. NEULASTA [Suspect]
     Active Substance: PEGFILGRASTIM
     Indication: PRODUCT USED FOR UNKNOWN INDICATION
     Dosage: UNK
     Route: 065

REACTIONS (6)
  - White blood cell count decreased [Unknown]
  - Pneumonia [Recovered/Resolved]
  - Liver disorder [Recovered/Resolved]
  - Bone pain [Recovered/Resolved]
  - Dehydration [Recovered/Resolved]
  - Renal disorder [Recovered/Resolved]
